FAERS Safety Report 8117450 (Version 2)
Quarter: 2013Q2

REPORT INFORMATION
  Report Type: Spontaneous
  Country: US (occurrence: US)
  Receive Date: 20110901
  Receipt Date: 20130509
  Transmission Date: 20140414
  Serious: Yes (Hospitalization, Other)
  Sender: FDA-Public Use
  Company Number: JP-ASTRAZENECA-2011SE50716

PATIENT
  Age: 50 Year
  Sex: Male

DRUGS (1)
  1. SEROQUEL [Suspect]
     Indication: BIPOLAR DISORDER
     Route: 048
     Dates: start: 2006

REACTIONS (5)
  - Ulcer [Unknown]
  - Pulmonary haemorrhage [Unknown]
  - Malaise [Unknown]
  - Insomnia [Unknown]
  - Abdominal pain upper [Unknown]
